FAERS Safety Report 5948795-X (Version None)
Quarter: 2008Q4

REPORT INFORMATION
  Report Type: 
  Country: None (occurrence: None)
  Receive Date: 20081107
  Receipt Date: 20081023
  Transmission Date: 20090506
  Serious: Yes (Death, Hospitalization)
  Sender: FDA-Public Use
  Company Number: 2007US002867

PATIENT
  Age: 42 Year
  Sex: Female

DRUGS (12)
  1. PROGRAF [Suspect]
     Indication: LIVER TRANSPLANT
     Dosage: 0.5 MG, BID, ORAL;  1 MG, BID, ORAL
     Route: 048
     Dates: start: 20060409, end: 20070415
  2. PREDNISOLONE ACETATE [Concomitant]
  3. RAPAMUNE [Concomitant]
  4. ASPIRIN [Concomitant]
  5. MULTIVITAMIN [Concomitant]
  6. ACTIGALL [Concomitant]
  7. BACTRIM [Concomitant]
  8. NEXIUM (ESOMEPRAZOLE SODIUM) [Concomitant]
  9. PROCRIT [Concomitant]
  10. REGLAN [Concomitant]
  11. VALCYTE [Concomitant]
  12. CITALOPRAM HYDROBROMIDE [Concomitant]

REACTIONS (15)
  - ASCITES [None]
  - AUTOIMMUNE HEPATITIS [None]
  - DEHYDRATION [None]
  - DRUG LEVEL DECREASED [None]
  - ESCHERICHIA BACTERAEMIA [None]
  - FLUID OVERLOAD [None]
  - HAEMODIALYSIS [None]
  - HEPATIC FAILURE [None]
  - HYPOTENSION [None]
  - LIVER TRANSPLANT REJECTION [None]
  - MALNUTRITION [None]
  - MULTI-ORGAN FAILURE [None]
  - RENAL FAILURE [None]
  - RESPIRATORY DISTRESS [None]
  - TRANSPLANT REJECTION [None]
